FAERS Safety Report 16472936 (Version 1)
Quarter: 2019Q2

REPORT INFORMATION
  Report Type: Spontaneous
  Country: DE (occurrence: DE)
  Receive Date: 20190625
  Receipt Date: 20190625
  Transmission Date: 20190711
  Serious: Yes (Congenital Anomaly)
  Sender: FDA-Public Use
  Company Number: DE-DRREDDYS-GER/GER/19/0111173

PATIENT
  Age: 1 Day
  Sex: Male
  Weight: 2.86 kg

DRUGS (4)
  1. SERTRALINE [Suspect]
     Active Substance: SERTRALINE HYDROCHLORIDE
     Indication: PRODUCT USED FOR UNKNOWN INDICATION
     Dosage: 50 [MG/D ]
     Route: 064
     Dates: start: 20180517, end: 20181222
  2. FOLIO FORTE [Concomitant]
     Active Substance: FOLIC ACID\VITAMINS
     Indication: PRODUCT USED FOR UNKNOWN INDICATION
     Dosage: (0.6. - 38.5. GESTATIONAL WEEK)
     Route: 064
     Dates: start: 20180401, end: 20181222
  3. ANTI-D-IMMUNGLOBULIN VOM MENSCHEN [Concomitant]
     Indication: PRODUCT USED FOR UNKNOWN INDICATION
     Route: 064
     Dates: start: 20181128, end: 20181128
  4. FLUOXETINE [Suspect]
     Active Substance: FLUOXETINE HYDROCHLORIDE
     Indication: PRODUCT USED FOR UNKNOWN INDICATION
     Dosage: 20 [MG/D ]
     Route: 064
     Dates: start: 20180326, end: 20180516

REACTIONS (5)
  - Atrial septal defect [Recovered/Resolved with Sequelae]
  - Congenital aortic valve stenosis [Recovered/Resolved with Sequelae]
  - Foetal exposure during pregnancy [Unknown]
  - Aorta hypoplasia [Recovered/Resolved with Sequelae]
  - Patent ductus arteriosus [Recovered/Resolved]

NARRATIVE: CASE EVENT DATE: 2018
